FAERS Safety Report 10839473 (Version 1)
Quarter: 2015Q1

REPORT INFORMATION
  Report Type: Spontaneous
  Country: US (occurrence: None)
  Receive Date: 20150218
  Receipt Date: 20150218
  Transmission Date: 20150721
  Serious: Yes (Other)
  Sender: FDA-Public Use
  Company Number: US-20150010

PATIENT
  Age: 29 Year
  Sex: Female

DRUGS (1)
  1. DOTAREM [Suspect]
     Active Substance: GADOTERATE MEGLUMINE
     Indication: NUCLEAR MAGNETIC RESONANCE IMAGING
     Route: 042
     Dates: start: 20150202, end: 20150202

REACTIONS (6)
  - Anxiety [None]
  - Headache [None]
  - Dizziness [None]
  - Pruritus generalised [None]
  - Urticaria [None]
  - Chills [None]

NARRATIVE: CASE EVENT DATE: 20150202
